FAERS Safety Report 13485696 (Version 1)
Quarter: 2017Q2

REPORT INFORMATION
  Report Type: Spontaneous
  Country: FR (occurrence: FR)
  Receive Date: 20170426
  Receipt Date: 20170426
  Transmission Date: 20170830
  Serious: Yes (Death, Hospitalization, Other)
  Sender: FDA-Public Use
  Company Number: FR-PFIZER INC-2017175957

PATIENT
  Age: 62 Year
  Sex: Female
  Weight: 50 kg

DRUGS (14)
  1. TRAMADOL. [Concomitant]
     Active Substance: TRAMADOL
     Dosage: UNK, AS NEEDED
  2. XANAX [Concomitant]
     Active Substance: ALPRAZOLAM
     Dosage: 1 DF, 3X/DAY (MORNING, MIDDAY AND EVENING)
  3. SPECIAFOLDINE [Concomitant]
     Active Substance: FOLIC ACID
     Dosage: 1 DF, DAILY
  4. DEROXAT [Concomitant]
     Active Substance: PAROXETINE HYDROCHLORIDE
     Dosage: 1 DF, 1X/DAY (EVENING)
  5. CARBOPLATINE HOSPIRA [Suspect]
     Active Substance: CARBOPLATIN
     Indication: LUNG ADENOCARCINOMA STAGE III
     Dosage: 320 MG, CYCLIC
     Route: 041
     Dates: start: 20161014, end: 20161014
  6. ASPEGIC [Concomitant]
     Active Substance: ASPIRIN DL-LYSINE
     Dosage: 1 DF, 1X/DAY (MIDDAY)
  7. ALIMTA [Suspect]
     Active Substance: PEMETREXED DISODIUM
     Indication: LUNG ADENOCARCINOMA STAGE III
     Dosage: 520 MG, CYCLIC
     Route: 041
     Dates: start: 20161014, end: 20161014
  8. DOLIPRANE [Concomitant]
     Active Substance: ACETAMINOPHEN
     Dosage: UNK, AS NEEDED
  9. ONDANSETRON ACCORD [Concomitant]
     Active Substance: ONDANSETRON
     Indication: CHEMOTHERAPY
     Dosage: 16 MG, UNK
  10. METHYLPREDNISOLONE MYLAN [Concomitant]
     Active Substance: METHYLPREDNISOLONE
     Indication: CHEMOTHERAPY
     Dosage: 120 MG, UNK
  11. CORTANCYL [Concomitant]
     Active Substance: PREDNISONE
     Dosage: 1 DF, 2X/DAY (MORNING AND EVENING)
  12. IMOVANE [Concomitant]
     Active Substance: ZOPICLONE
     Dosage: 1 DF, 1X/DAY (EVENING)
  13. VITAMIN B12 [Concomitant]
     Active Substance: CYANOCOBALAMIN
     Indication: CHEMOTHERAPY
     Dosage: 1 MG, UNK
  14. INNOHEP [Concomitant]
     Active Substance: TINZAPARIN SODIUM
     Dosage: 1 DF, DAILY

REACTIONS (5)
  - Death [Fatal]
  - Head injury [Unknown]
  - Fall [Unknown]
  - Pancytopenia [Not Recovered/Not Resolved]
  - Pneumonia [Unknown]

NARRATIVE: CASE EVENT DATE: 20161019
